FAERS Safety Report 8155566-5 (Version None)
Quarter: 2012Q1

REPORT INFORMATION
  Report Type: 
  Country: None (occurrence: None)
  Receive Date: 20120215
  Receipt Date: 20120203
  Transmission Date: 20120608
  Serious: Yes (Life-Threatening)
  Sender: FDA-Public Use
  Company Number: 1155553

PATIENT
  Age: 63 Year
  Sex: Female
  Weight: 53 kg

DRUGS (8)
  1. DEXAMETHASONE [Concomitant]
  2. ANTIEMETICS AND ANTINAUSEANTS [Concomitant]
  3. CAPECITABINE [Concomitant]
  4. OXALIPLATIN [Suspect]
     Indication: COLORECTAL CANCER METASTATIC
     Dosage: 1ST CYCLE: 130 MG/M^2 (215 MG), INTERVENOUS DRIP ; 2ND CYCLE 130 MG/M^2
     Route: 041
     Dates: start: 20111123, end: 20111123
  5. OXALIPLATIN [Suspect]
     Indication: COLORECTAL CANCER METASTATIC
     Dosage: 1ST CYCLE: 130 MG/M^2 (215 MG), INTERVENOUS DRIP ; 2ND CYCLE 130 MG/M^2
     Route: 041
     Dates: start: 20111214, end: 20111214
  6. AVASTIN [Suspect]
     Indication: COLORECTAL CANCER METASTATIC
     Dosage: 450 MG, INTRAVENOUS DRIP
     Route: 041
     Dates: start: 20111123, end: 20111123
  7. ONDANSETRON [Concomitant]
  8. DEXTROSE [Concomitant]

REACTIONS (6)
  - LOCAL SWELLING [None]
  - STRIDOR [None]
  - THROAT TIGHTNESS [None]
  - DYSPHONIA [None]
  - DYSPNOEA [None]
  - OEDEMA MOUTH [None]
